FAERS Safety Report 15369644 (Version 1)
Quarter: 2018Q3

REPORT INFORMATION
  Report Type: Spontaneous
  Country: US (occurrence: US)
  Receive Date: 20180904
  Receipt Date: 20180904
  Transmission Date: 20181010
  Serious: Yes (Hospitalization)
  Sender: FDA-Public Use
  Company Number: None

PATIENT
  Age: 70 Year
  Sex: Male
  Weight: 78.3 kg

DRUGS (10)
  1. ATENOLOL. [Concomitant]
     Active Substance: ATENOLOL
  2. FINASTERIDE. [Concomitant]
     Active Substance: FINASTERIDE
  3. METFORMIN [Concomitant]
     Active Substance: METFORMIN HYDROCHLORIDE
  4. CAPECITABINE. [Suspect]
     Active Substance: CAPECITABINE
     Indication: GASTRIC CANCER
     Dosage: ?          OTHER FREQUENCY:BIDX14 THEN 7 OFF;?
     Route: 048
     Dates: start: 20180810
  5. ASA [Concomitant]
     Active Substance: ASPIRIN
  6. OMEPRAZOLE. [Concomitant]
     Active Substance: OMEPRAZOLE
  7. MELATONIN [Concomitant]
     Active Substance: MELATONIN
  8. DOCUSATE [Concomitant]
     Active Substance: DOCUSATE
  9. CITALOPRAM [Concomitant]
     Active Substance: CITALOPRAM HYDROBROMIDE
  10. TAMSULOSIN [Concomitant]
     Active Substance: TAMSULOSIN

REACTIONS (1)
  - Urinary tract infection [None]

NARRATIVE: CASE EVENT DATE: 20180825
